FAERS Safety Report 16295527 (Version 1)
Quarter: 2019Q2

REPORT INFORMATION
  Report Type: Spontaneous
  Country: US (occurrence: US)
  Receive Date: 20190404
  Receipt Date: 20190404
  Transmission Date: 20190711
  Serious: Yes (Hospitalization)
  Sender: FDA-Public Use
  Company Number: None

PATIENT
  Age: 53 Year
  Sex: Male

DRUGS (17)
  1. APAP/CODEINE [Concomitant]
     Active Substance: ACETAMINOPHEN\CODEINE PHOSPHATE
  2. COLISTIMETH [Concomitant]
  3. ENOXPARIN [Concomitant]
  4. FAMOTIDINE. [Concomitant]
     Active Substance: FAMOTIDINE
  5. ENBREL [Suspect]
     Active Substance: ETANERCEPT
     Indication: PRODUCT USED FOR UNKNOWN INDICATION
     Route: 058
     Dates: start: 20180304, end: 20181227
  6. ATOCAQUONE [Concomitant]
  7. PHOSPHO-TRIN [Concomitant]
  8. VORICONAZOLE. [Concomitant]
     Active Substance: VORICONAZOLE
  9. PANTPPRAZOLE [Concomitant]
  10. VALGANCDICLOV [Concomitant]
  11. ADCIRCA [Suspect]
     Active Substance: TADALAFIL
     Indication: PULMONARY ARTERIAL HYPERTENSION
     Route: 048
     Dates: start: 20180328, end: 201902
  12. METOPROLOL. [Concomitant]
     Active Substance: METOPROLOL
  13. BUDENOSIDE [Concomitant]
     Active Substance: BUDESONIDE
  14. FUROSEMIDE. [Concomitant]
     Active Substance: FUROSEMIDE
  15. MAG OXIDE [Concomitant]
     Active Substance: MAGNESIUM OXIDE
  16. PREDNISONE. [Concomitant]
     Active Substance: PREDNISONE
  17. VITAMIND [Concomitant]

REACTIONS (1)
  - Lung transplant [None]

NARRATIVE: CASE EVENT DATE: 20190211
